FAERS Safety Report 7545857-0 (Version None)
Quarter: 2011Q2

REPORT INFORMATION
  Report Type: 
  Country: None (occurrence: None)
  Receive Date: 20110524
  Receipt Date: 20110308
  Transmission Date: 20111010
  Serious: No
  Sender: FDA-Public Use
  Company Number: 028879

PATIENT
  Sex: Female
  Weight: 140.6 kg

DRUGS (10)
  1. CIMZIA [Suspect]
     Indication: CROHN'S DISEASE
     Dosage: (400 MG 1X/2 WEEKS, INDUCTION DOSE SUBCUTANEOUS)
     Route: 058
     Dates: start: 20110302
  2. IMURAN [Concomitant]
  3. PHENERGAN /00033001/ [Concomitant]
  4. LASIX [Concomitant]
  5. ASACOL [Concomitant]
  6. AMITRIPTYLINE HCL [Concomitant]
  7. REGLAN [Concomitant]
  8. NORVASC [Concomitant]
  9. LISINOPRIL [Concomitant]
  10. NORCO [Concomitant]

REACTIONS (6)
  - BREAST PAIN [None]
  - BLOOD PRESSURE INCREASED [None]
  - DIARRHOEA [None]
  - INJECTION SITE RASH [None]
  - BURNING SENSATION [None]
  - INFLUENZA LIKE ILLNESS [None]
